FAERS Safety Report 23881093 (Version 1)
Quarter: 2024Q2

REPORT INFORMATION
  Report Type: Spontaneous
  Country: FR (occurrence: FR)
  Receive Date: 20240521
  Receipt Date: 20240521
  Transmission Date: 20240716
  Serious: Yes (Hospitalization)
  Sender: FDA-Public Use
  Company Number: FR-AFSSAPS-AN2024000116

PATIENT
  Age: 71 Year
  Sex: Male
  Weight: 118 kg

DRUGS (11)
  1. METFORMIN [Suspect]
     Active Substance: METFORMIN HYDROCHLORIDE
     Indication: Diabetes mellitus
     Dosage: 1 GRAM, DAILY
     Route: 048
  2. MESTINON [Suspect]
     Active Substance: PYRIDOSTIGMINE BROMIDE
     Indication: Product used for unknown indication
     Dosage: 2 DOSAGE FORM, DAILY
     Route: 048
     Dates: end: 20231226
  3. METOPIMAZINE [Suspect]
     Active Substance: METOPIMAZINE
     Indication: Vomiting
     Dosage: 22.5 MILLIGRAM, DAILY
     Route: 048
     Dates: end: 20231226
  4. OXYCODONE [Suspect]
     Active Substance: OXYCODONE\OXYCODONE HYDROCHLORIDE
     Indication: Pain
     Dosage: VARIABLE
     Route: 048
     Dates: end: 20231226
  5. MOVICOL [Suspect]
     Active Substance: POLYETHYLENE GLYCOL 3350\POTASSIUM CHLORIDE\SODIUM BICARBONATE\SODIUM CHLORIDE
     Indication: Constipation
     Dosage: 2 DOSAGE FORM, DAILY
     Route: 048
     Dates: end: 20231226
  6. DECAPEPTYL L P [Concomitant]
     Indication: Product used for unknown indication
     Dosage: 1 DOSAGE FORM, 1DOSE/3MONTHS
     Route: 058
  7. ACETAMINOPHEN [Concomitant]
     Active Substance: ACETAMINOPHEN
     Indication: Product used for unknown indication
     Dosage: 3 GRAM, DAILY
     Route: 048
  8. LERCANIDIPINE [Concomitant]
     Active Substance: LERCANIDIPINE
     Indication: Product used for unknown indication
     Dosage: 10 MILLIGRAM, DAILY
     Route: 048
     Dates: end: 20231226
  9. ALDOMET 500 mg, coated tablet [Concomitant]
     Indication: Product used for unknown indication
     Dosage: 1 DOSAGE FORM, DAILY
     Route: 048
     Dates: end: 20231226
  10. AMILORIDE HYDROCHLORIDE [Concomitant]
     Active Substance: AMILORIDE HYDROCHLORIDE
     Indication: Product used for unknown indication
     Dosage: 1 DOSAGE FORM, DAILY
     Route: 048
     Dates: end: 20231226
  11. HYDROCHLOROTHIAZIDE\IRBESARTAN [Concomitant]
     Active Substance: HYDROCHLOROTHIAZIDE\IRBESARTAN
     Indication: Product used for unknown indication
     Dosage: 1 DOSAGE FORM, DAILY
     Route: 048

REACTIONS (3)
  - Rash maculo-papular [Recovering/Resolving]
  - Agranulocytosis [Recovered/Resolved]
  - Intestinal transit time decreased [Recovered/Resolved]

NARRATIVE: CASE EVENT DATE: 20231201
